FAERS Safety Report 4917824-4 (Version None)
Quarter: 2006Q1

REPORT INFORMATION
  Report Type: 
  Country: None (occurrence: None)
  Receive Date: 20060113
  Receipt Date: 20051018
  Transmission Date: 20060701
  Serious: No
  Sender: FDA-Public Use
  Company Number: 2005SP003570

PATIENT
  Age: 65 Year
  Sex: Female
  Weight: 90.7194 kg

DRUGS (12)
  1. LUNESTA [Suspect]
     Indication: INSOMNIA
     Dosage: 2 MG; HS; ORAL
     Route: 048
     Dates: start: 20051005, end: 20051005
  2. AMLODIPINE BESYLATE [Concomitant]
  3. ZANTAC [Concomitant]
  4. WARFARIN SODIUM [Concomitant]
  5. COZAAR [Concomitant]
  6. ATORVASTATIN CALCIUM [Concomitant]
  7. LASIX [Concomitant]
  8. LANOXIN [Concomitant]
  9. FOLIC ACID [Concomitant]
  10. SALICYLIC ACID [Concomitant]
  11. LEXAPRO [Concomitant]
  12. SILDENAFIL CITRATE [Concomitant]

REACTIONS (1)
  - DYSGEUSIA [None]
